FAERS Safety Report 9403250 (Version 1)
Quarter: 2013Q3

REPORT INFORMATION
  Report Type: Spontaneous
  Country: US (occurrence: None)
  Receive Date: 20130715
  Receipt Date: 20130715
  Transmission Date: 20140515
  Serious: Yes (Other)
  Sender: FDA-Public Use
  Company Number: None

PATIENT
  Age: 63 Year
  Sex: Male
  Weight: 132.7 kg

DRUGS (1)
  1. RANITIDINE [Suspect]
     Dates: start: 20130614

REACTIONS (1)
  - Thrombocytopenia [None]
